FAERS Safety Report 7345132-3 (Version None)
Quarter: 2011Q1

REPORT INFORMATION
  Report Type: 
  Country: None (occurrence: None)
  Receive Date: 20110310
  Receipt Date: 20110211
  Transmission Date: 20110831
  Serious: No
  Sender: FDA-Public Use
  Company Number: US-B.I. PHARMACEUTICALS,INC./RIDGEFIELD-2010-BP-14954BP

PATIENT
  Age: 74 Year
  Sex: Female

DRUGS (19)
  1. CARDIZEM [Concomitant]
     Dosage: 180 MG
     Route: 048
  2. MICARDIS [Concomitant]
     Dosage: 20 MG
  3. FUROSEMIDE [Concomitant]
     Dosage: 40 MG
  4. LEVOXYL [Concomitant]
     Dosage: 88 MG
  5. ACTOS [Concomitant]
     Dosage: 30 MG
     Route: 048
  6. POTASSIUM [Concomitant]
     Dosage: 40 MG
  7. CALCIUM W/D [Concomitant]
  8. XOPENEX [Concomitant]
  9. PRADAXA [Suspect]
     Indication: CEREBROVASCULAR ACCIDENT PROPHYLAXIS
  10. PRADAXA [Suspect]
     Indication: DRUG THERAPY CHANGED
  11. SERTRALINE [Concomitant]
     Dosage: 50 MG
  12. LIPITOR [Concomitant]
     Dosage: 10 MG
  13. ADVAIR DISKUS 100/50 [Concomitant]
  14. METFORMIN [Concomitant]
     Dosage: 1700 MG
  15. SPIRIVA [Concomitant]
     Dosage: 18 MCG
  16. PRADAXA [Suspect]
     Indication: ATRIAL FIBRILLATION
     Dosage: 300 MG
     Route: 048
     Dates: start: 20101130
  17. METOPROLOL [Concomitant]
     Dosage: 25 MG
  18. PREVACID [Concomitant]
     Dosage: 30 MG
  19. SINGULAIR [Concomitant]
     Dosage: 10 MG

REACTIONS (3)
  - LOWER RESPIRATORY TRACT INFECTION [None]
  - DYSPHONIA [None]
  - INSOMNIA [None]
